FAERS Safety Report 26034353 (Version 1)
Quarter: 2025Q4

REPORT INFORMATION
  Report Type: Spontaneous
  Country: US (occurrence: None)
  Receive Date: 20251112
  Receipt Date: 20251112
  Transmission Date: 20260118
  Serious: Yes (Hospitalization)
  Sender: FDA-CTU
  Company Number: None

PATIENT
  Age: 67 Year
  Sex: Female
  Weight: 56.8 kg

DRUGS (4)
  1. FLUOROURACIL [Suspect]
     Active Substance: FLUOROURACIL
     Dates: end: 20251008
  2. LEUCOVORIN CALCIUM [Suspect]
     Active Substance: LEUCOVORIN CALCIUM
     Dates: end: 20251008
  3. NIVOLUMAB [Suspect]
     Active Substance: NIVOLUMAB
     Dates: end: 20251008
  4. ELOXATIN [Suspect]
     Active Substance: OXALIPLATIN
     Dates: end: 20251008

REACTIONS (5)
  - Large intestinal obstruction [None]
  - Dyspnoea [None]
  - Ascites [None]
  - Drug ineffective [None]
  - Neutrophil count decreased [None]

NARRATIVE: CASE EVENT DATE: 20251105
